FAERS Safety Report 7519303-7 (Version None)
Quarter: 2011Q2

REPORT INFORMATION
  Report Type: 
  Country: None (occurrence: None)
  Receive Date: 20110602
  Receipt Date: 20110527
  Transmission Date: 20111010
  Serious: Yes (Death, Hospitalization, Other)
  Sender: FDA-Public Use
  Company Number: US-ASTRAZENECA-2011SE17619

PATIENT
  Age: 26 Year
  Sex: Female

DRUGS (11)
  1. ACETAMINOPHEN [Concomitant]
     Indication: PYREXIA
     Dosage: EVERY 4 TO 6 HOURS AS NEEDED
     Route: 054
  2. KEPPRA [Concomitant]
  3. VALIUM [Concomitant]
     Dosage: EVERY 2 HOURS AS NEEDED
     Route: 042
  4. ATIVAN [Concomitant]
     Dosage: EVERY 2 HOURS AS NEEDED
     Route: 042
  5. LAMICTAL [Concomitant]
  6. ZOFRAN [Concomitant]
     Dosage: EVERY 4 HOURS AS NEEDED
     Route: 042
  7. SEROQUEL [Suspect]
     Indication: AGITATION
     Route: 048
     Dates: start: 20070517, end: 20110315
  8. ACETAMINOPHEN [Concomitant]
     Indication: PAIN
     Dosage: EVERY 4 TO 6 HOURS AS NEEDED
     Route: 054
  9. DIASTAT [Concomitant]
     Indication: CONVULSION
     Dosage: AS NEEDED
     Route: 054
  10. ENEMA [Concomitant]
     Indication: CONSTIPATION
     Dosage: EVERY 3 DAYS AS NEEDED
  11. TEGRETOL [Concomitant]

REACTIONS (9)
  - RENAL FAILURE CHRONIC [None]
  - NEUROLEPTIC MALIGNANT SYNDROME [None]
  - ANAEMIA [None]
  - LEUKOCYTOSIS [None]
  - SEPSIS [None]
  - PNEUMONIA [None]
  - HOSPICE CARE [None]
  - AMAUROTIC FAMILIAL IDIOCY [None]
  - URINARY TRACT INFECTION [None]
